FAERS Safety Report 11258250 (Version 1)
Quarter: 2015Q2

REPORT INFORMATION
  Report Type: Spontaneous
  Country: US (occurrence: None)
  Receive Date: 20150617
  Receipt Date: 20150617
  Transmission Date: 20150821
  Serious: No
  Sender: FDA-Public Use
  Company Number: 2014TASUS000580

PATIENT
  Age: 64 Year
  Sex: Male
  Weight: 94.3 kg

DRUGS (3)
  1. HETLIOZ [Suspect]
     Active Substance: TASIMELTEON
     Indication: CIRCADIAN RHYTHM SLEEP DISORDER
     Route: 048
     Dates: start: 20141031
  2. PAXIL [Concomitant]
     Active Substance: PAROXETINE HYDROCHLORIDE
  3. DEPOTESTERONE (TESTOSTERONE CIPIONATE) [Concomitant]

REACTIONS (2)
  - Abnormal dreams [None]
  - Drug ineffective [None]

NARRATIVE: CASE EVENT DATE: 20141103
